FAERS Safety Report 16115978 (Version 2)
Quarter: 2019Q2

REPORT INFORMATION
  Report Type: Spontaneous
  Country: CO (occurrence: CO)
  Receive Date: 20190326
  Receipt Date: 20190520
  Transmission Date: 20190711
  Serious: Yes (Other)
  Sender: FDA-Public Use
  Company Number: CO-AMGEN-COLSP2018086680

PATIENT
  Age: 44 Year
  Sex: Female

DRUGS (4)
  1. ENBREL [Suspect]
     Active Substance: ETANERCEPT
     Indication: JUVENILE IDIOPATHIC ARTHRITIS
     Dosage: 50 MILLIGRAM, QWK
     Route: 058
     Dates: start: 2009
  2. ENBREL [Suspect]
     Active Substance: ETANERCEPT
     Indication: OSTEOARTHRITIS
     Dosage: 50 MILLIGRAM, QWK
     Route: 058
     Dates: start: 2010, end: 2017
  3. METHOTREXATE. [Concomitant]
     Active Substance: METHOTREXATE
     Dosage: 8 DOSAGE FORM, QWK (4 TABLETS ON SATURDAY AND 4 TABLETS ON SUNDAY)
     Route: 048
     Dates: start: 2004
  4. ENBREL [Suspect]
     Active Substance: ETANERCEPT
     Dosage: 50 MILLIGRAM, QWK
     Route: 058
     Dates: start: 2017

REACTIONS (5)
  - Impaired healing [Unknown]
  - Pain in extremity [Unknown]
  - Bronchitis [Unknown]
  - Arthralgia [Unknown]
  - Device loosening [Unknown]

NARRATIVE: CASE EVENT DATE: 2017
